FAERS Safety Report 14929654 (Version 1)
Quarter: 2018Q2

REPORT INFORMATION
  Report Type: Spontaneous
  Country: IT (occurrence: IT)
  Receive Date: 20180523
  Receipt Date: 20180523
  Transmission Date: 20180711
  Serious: Yes (Death)
  Sender: FDA-Public Use
  Company Number: IT-PFIZER INC-2018210181

PATIENT
  Sex: Male

DRUGS (5)
  1. SONIREM [Suspect]
     Active Substance: ZOLPIDEM TARTRATE
     Dosage: UNK
  2. CIPRALEX [Suspect]
     Active Substance: ESCITALOPRAM OXALATE
     Dosage: UNK
  3. XANAX [Suspect]
     Active Substance: ALPRAZOLAM
     Dosage: UNK
  4. RIVOTRIL [Suspect]
     Active Substance: CLONAZEPAM
     Indication: DEPRESSION
     Dosage: UNK
  5. ZARELIS [Suspect]
     Active Substance: VENLAFAXINE HYDROCHLORIDE
     Dosage: UNK

REACTIONS (1)
  - Suicide attempt [Fatal]
